FAERS Safety Report 4376141-4 (Version None)
Quarter: 2004Q2

REPORT INFORMATION
  Report Type: 
  Country: None (occurrence: None)
  Receive Date: 20040611
  Receipt Date: 20040512
  Transmission Date: 20050107
  Serious: Yes (Death, Hospitalization)
  Sender: FDA-Public Use
  Company Number: CZ-BRISTOL-MYERS SQUIBB COMPANY-12586053

PATIENT
  Age: 51 Year
  Sex: Male

DRUGS (5)
  1. CYCLOPHOSPHAMIDE [Suspect]
     Indication: NON-HODGKIN'S LYMPHOMA
     Dosage: THERAPY INITATED FEB-2004.
     Dates: start: 20040317, end: 20040317
  2. DOXORUBICIN HCL [Suspect]
     Indication: NON-HODGKIN'S LYMPHOMA
     Dosage: THERAPY INITIATED FEB-2004.
     Dates: start: 20040317, end: 20040317
  3. VINCRISTINE [Suspect]
     Indication: NON-HODGKIN'S LYMPHOMA
     Dosage: THERAPY INITIATED FEB-2004.
     Dates: start: 20040317, end: 20040317
  4. MABTHERA [Suspect]
     Indication: NON-HODGKIN'S LYMPHOMA
     Dosage: THERAPY INITIATED FEB-2004.
     Dates: start: 20040317, end: 20040317
  5. PREDNISONE [Suspect]
     Indication: NON-HODGKIN'S LYMPHOMA
     Dosage: THERAPY INITIATED FEB-2004.
     Dates: start: 20040317, end: 20040317

REACTIONS (6)
  - COMA HEPATIC [None]
  - FEBRILE NEUTROPENIA [None]
  - HEPATIC FAILURE [None]
  - HEPATIC FIBROSIS [None]
  - HEPATITIS B [None]
  - HEPATITIS CHOLESTATIC [None]
